FAERS Safety Report 5114090-4 (Version None)
Quarter: 2006Q3

REPORT INFORMATION
  Report Type: 
  Country: None (occurrence: None)
  Receive Date: 20060925
  Receipt Date: 20060925
  Transmission Date: 20061208
  Serious: Yes (Hospitalization, Other)
  Sender: FDA-Public Use
  Company Number: S06-USA-02033-01

PATIENT
  Age: 15 Year
  Sex: Female

DRUGS (2)
  1. WELLBUTRIN XL [Suspect]
     Indication: DEPRESSION
     Dosage: 3000MG SINGLE DOSE
     Route: 048
     Dates: start: 20060507
  2. CELEXA [Suspect]
     Indication: DEPRESSION
     Dosage: 20MG PER DAY
     Route: 048
     Dates: start: 20020201

REACTIONS (7)
  - CONVULSION [None]
  - DELIRIUM [None]
  - INTENTIONAL OVERDOSE [None]
  - IRRITABILITY [None]
  - MOOD ALTERED [None]
  - SUICIDAL IDEATION [None]
  - SUICIDE ATTEMPT [None]
